FAERS Safety Report 12377889 (Version 1)
Quarter: 2016Q2

REPORT INFORMATION
  Report Type: Spontaneous
  Country: US (occurrence: US)
  Receive Date: 20160517
  Receipt Date: 20160517
  Transmission Date: 20160815
  Serious: No
  Sender: FDA-Public Use
  Company Number: US-JNJFOC-20160408044

PATIENT
  Sex: Female

DRUGS (1)
  1. TYLENOL EXTRA STRENGTH [Suspect]
     Active Substance: ACETAMINOPHEN
     Indication: ANALGESIC THERAPY
     Dosage: 1-2 CAPLETS, }1X PER DAY, AS NEEDED (ONE TABLET AT FOUR HOUR INTERVALS THROUGHOUT THE DAY.)
     Route: 048

REACTIONS (2)
  - Incorrect dose administered [Unknown]
  - Product container issue [Unknown]
